FAERS Safety Report 6057179-8 (Version None)
Quarter: 2009Q1

REPORT INFORMATION
  Report Type: 
  Country: None (occurrence: None)
  Receive Date: 20090129
  Receipt Date: 20080318
  Transmission Date: 20090719
  Serious: No
  Sender: FDA-Public Use
  Company Number: A0707581A

PATIENT
  Sex: Male

DRUGS (2)
  1. WELLBUTRIN [Suspect]
     Indication: MENTAL DISORDER
     Route: 048
  2. PROZAC [Concomitant]
     Indication: MENTAL DISORDER

REACTIONS (2)
  - ADVERSE EVENT [None]
  - DRUG PRESCRIBING ERROR [None]
